FAERS Safety Report 4311862-0 (Version None)
Quarter: 2004Q1

REPORT INFORMATION
  Report Type: 
  Country: None (occurrence: None)
  Receive Date: 20040302
  Receipt Date: 20031127
  Transmission Date: 20041129
  Serious: No
  Sender: FDA-Public Use
  Company Number: 200329425BWH

PATIENT
  Age: 47 Year
  Sex: Male

DRUGS (3)
  1. LEVITRA [Suspect]
     Dosage: 10 MG, TOTAL DAILY, ORAL
     Route: 048
  2. LOPRESSOR [Concomitant]
  3. LIPITOR [Concomitant]

REACTIONS (2)
  - FLUSHING [None]
  - NASAL CONGESTION [None]
